FAERS Safety Report 4437582-X (Version None)
Quarter: 2004Q3

REPORT INFORMATION
  Report Type: 
  Country: None (occurrence: None)
  Receive Date: 20040827
  Receipt Date: 20040811
  Transmission Date: 20050211
  Serious: Yes (Hospitalization)
  Sender: FDA-Public Use
  Company Number: MEDI-0002187

PATIENT
  Sex: Male

DRUGS (2)
  1. ETHYOL [Suspect]
     Indication: RADIOTHERAPY
  2. RADIATION THERAPY [Concomitant]

REACTIONS (5)
  - CONFUSIONAL STATE [None]
  - NEUROLOGICAL SYMPTOM [None]
  - RENAL FAILURE [None]
  - RESPIRATORY FAILURE [None]
  - THROMBOTIC THROMBOCYTOPENIC PURPURA [None]
